FAERS Safety Report 17117193 (Version 3)
Quarter: 2021Q1

REPORT INFORMATION
  Report Type: Spontaneous
  Country: JP (occurrence: JP)
  Receive Date: 20191205
  Receipt Date: 20210315
  Transmission Date: 20210419
  Serious: Yes (Other)
  Sender: FDA-Public Use
  Company Number: JP-ASPEN-JPG2019JP012740AA

PATIENT

DRUGS (4)
  1. DOPAMINE [Concomitant]
     Active Substance: DOPAMINE HYDROCHLORIDE
     Indication: HYPOTENSION
     Route: 065
  2. HYDROCORTISONE. [Suspect]
     Active Substance: HYDROCORTISONE
     Indication: HYPOTENSION
     Dosage: 5 MG/KG, BID
     Route: 065
  3. DEXAMETHASONE. [Suspect]
     Active Substance: DEXAMETHASONE
     Indication: NEONATAL CANDIDA INFECTION
     Dosage: 0.6 DOSAGE FORM, QD
     Route: 065
  4. INDOMETHACIN. [Suspect]
     Active Substance: INDOMETHACIN
     Indication: PATENT DUCTUS ARTERIOSUS
     Dosage: 0.1 MG/KG
     Route: 065

REACTIONS (1)
  - Duodenal perforation [Unknown]
